FAERS Safety Report 14360965 (Version 2)
Quarter: 2018Q2

REPORT INFORMATION
  Report Type: Spontaneous
  Country: US (occurrence: US)
  Receive Date: 20180107
  Receipt Date: 20180430
  Transmission Date: 20180711
  Serious: Yes (Other)
  Sender: FDA-Public Use
  Company Number: US-SHIRE-US201732076

PATIENT
  Age: 36 Year
  Sex: Female
  Weight: 135.6 kg

DRUGS (4)
  1. VPRIV [Suspect]
     Active Substance: VELAGLUCERASE ALFA
     Indication: GAUCHER^S DISEASE
     Dosage: 45 IU/KG, 1X/2WKS
     Route: 042
     Dates: start: 20170223
  2. CEREDASE [Concomitant]
     Active Substance: ALGLUCERASE
     Indication: PRODUCT USED FOR UNKNOWN INDICATION
     Route: 065
  3. CEREZYME [Concomitant]
     Active Substance: IMIGLUCERASE
     Indication: PRODUCT USED FOR UNKNOWN INDICATION
     Route: 065
  4. PRENATAL VITAMINS                  /07499601/ [Concomitant]
     Active Substance: VITAMINS
     Indication: SUPPLEMENTATION THERAPY
     Route: 065

REACTIONS (4)
  - Gestational hypertension [Unknown]
  - Exposure during pregnancy [Unknown]
  - Thrombocytopenia [Not Recovered/Not Resolved]
  - Insurance issue [Unknown]

NARRATIVE: CASE EVENT DATE: 20170927
